FAERS Safety Report 17147030 (Version 1)
Quarter: 2019Q4

REPORT INFORMATION
  Report Type: Spontaneous
  Country: FR (occurrence: FR)
  Receive Date: 20191212
  Receipt Date: 20191212
  Transmission Date: 20200122
  Serious: Yes (Hospitalization)
  Sender: FDA-Public Use
  Company Number: FR-ZYDUS-021910

PATIENT
  Age: 74 Year
  Sex: Female

DRUGS (16)
  1. KARDEGIC [Suspect]
     Active Substance: ASPIRIN DL-LYSINE
     Indication: THROMBOSIS PROPHYLAXIS
     Route: 048
     Dates: end: 20170403
  2. SECTRAL [Suspect]
     Active Substance: ACEBUTOLOL HYDROCHLORIDE
     Indication: HYPERTENSION
     Dosage: 200 MG, 1D
     Route: 048
  3. NATISPRAY [Suspect]
     Active Substance: NITROGLYCERIN
     Indication: ANGINA PECTORIS
     Dosage: 0.3 MG, 1D
     Route: 002
  4. PAROXETINE. [Suspect]
     Active Substance: PAROXETINE
     Indication: DEPRESSION
     Dosage: 20 MG, 1D
     Route: 048
  5. NATISPRAY [Suspect]
     Active Substance: NITROGLYCERIN
     Indication: ANGINA PECTORIS
     Route: 002
  6. KARDEGIC [Suspect]
     Active Substance: ASPIRIN DL-LYSINE
     Indication: THROMBOSIS PROPHYLAXIS
     Dosage: 75 MG, 1D
     Route: 048
     Dates: end: 20170403
  7. PERINDOPRIL [Suspect]
     Active Substance: PERINDOPRIL
     Indication: HYPERTENSION
     Dosage: 5 MG, 1D
     Route: 048
  8. EZETROL [Suspect]
     Active Substance: EZETIMIBE
     Indication: HYPERLIPIDAEMIA
     Dosage: 10 MG, 1D
     Route: 048
  9. CRESTOR [Suspect]
     Active Substance: ROSUVASTATIN CALCIUM
     Indication: HYPERLIPIDAEMIA
     Dosage: 20 MG, 1D
     Route: 048
  10. LAROXYL [Suspect]
     Active Substance: AMITRIPTYLINE HYDROCHLORIDE
     Indication: DEPRESSION
     Dosage: 25 MG, 1D
     Route: 048
  11. DOLIPRANE [Suspect]
     Active Substance: ACETAMINOPHEN
     Indication: PAIN
     Dosage: 1 G, 1D
     Route: 048
  12. OMEPRAZOLE. [Suspect]
     Active Substance: OMEPRAZOLE
     Indication: PROPHYLAXIS AGAINST GASTROINTESTINAL ULCER
     Dosage: 20 MG, 1D
     Route: 048
  13. TRAMADOL. [Suspect]
     Active Substance: TRAMADOL
     Indication: PAIN
     Dosage: 200 MG, 1D
     Route: 048
  14. DI-HYDAN [Suspect]
     Active Substance: PHENYTOIN
     Indication: EPILEPSY
     Dosage: 100 MG, 1D
     Route: 048
  15. MACROGOL [Suspect]
     Active Substance: POLYETHYLENE GLYCOLS
     Indication: CONSTIPATION
     Dosage: 1 SACHET IF NEEDED
     Route: 048
  16. FORLAX [Suspect]
     Active Substance: POLYETHYLENE GLYCOL 4000
     Indication: CONSTIPATION
     Dosage: 1 SACHET IF NEEDED
     Route: 048

REACTIONS (2)
  - Thrombocytopenia [Recovering/Resolving]
  - Immune thrombocytopenic purpura [Recovering/Resolving]

NARRATIVE: CASE EVENT DATE: 20170330
